FAERS Safety Report 5360843-7 (Version None)
Quarter: 2007Q2

REPORT INFORMATION
  Report Type: 
  Country: None (occurrence: None)
  Receive Date: 20070618
  Receipt Date: 20070604
  Transmission Date: 20071010
  Serious: Yes (Hospitalization)
  Sender: FDA-Public Use
  Company Number: US-SHR-US-2007-020841

PATIENT
  Age: 70 Year
  Sex: Male

DRUGS (3)
  1. CAMPATH [Suspect]
     Dosage: 3 MG, 1 DOSE
     Route: 058
     Dates: start: 20070601, end: 20070601
  2. CAMPATH [Suspect]
     Dosage: 10 MG, 1 DOSE
     Route: 058
     Dates: start: 20070601, end: 20070601
  3. CAMPATH [Suspect]
     Dosage: 30 MG, 1 DOSE
     Route: 058
     Dates: start: 20070601, end: 20070601

REACTIONS (1)
  - HOSPITALISATION [None]
